FAERS Safety Report 9931169 (Version 1)
Quarter: 2014Q1

REPORT INFORMATION
  Report Type: Spontaneous
  Country: FR (occurrence: FR)
  Receive Date: 20140228
  Receipt Date: 20140228
  Transmission Date: 20141002
  Serious: Yes (Hospitalization)
  Sender: FDA-Public Use
  Company Number: FR-ROCHE-1355677

PATIENT
  Age: 69 Year
  Sex: Male

DRUGS (18)
  1. MABTHERA [Suspect]
     Indication: B-CELL LYMPHOMA
     Dosage: DAY 1, DAY 8, DAY 15
     Route: 042
     Dates: start: 20121226
  2. MABTHERA [Suspect]
     Dosage: 7 CYCLES ON DAY 1
     Route: 042
     Dates: start: 20130116, end: 20130704
  3. MABTHERA [Suspect]
     Dosage: TENTH CYCLE ON DAY 1
     Route: 042
     Dates: start: 20130828
  4. MABTHERA [Suspect]
     Dosage: TWELFTH CYCLE
     Route: 042
     Dates: start: 20131023
  5. MABTHERA [Suspect]
     Dosage: FOURTEENTH CYCLE
     Route: 042
     Dates: start: 20131218
  6. REVLIMID [Suspect]
     Indication: B-CELL LYMPHOMA
     Dosage: DAY 1 TO DAY 21
     Route: 048
     Dates: start: 20121226
  7. REVLIMID [Suspect]
     Dosage: 7 TH CYCLE DAY 1 TO DAY 21
     Route: 048
     Dates: start: 20130116, end: 20130704
  8. REVLIMID [Suspect]
     Dosage: NINTH CYCLE ON DAY 1 AND 21
     Route: 048
     Dates: start: 20130731
  9. REVLIMID [Suspect]
     Dosage: TENTH CYCLE
     Route: 048
     Dates: start: 20130828
  10. REVLIMID [Suspect]
     Dosage: ELEVENTH CYCLE
     Route: 048
     Dates: start: 20130925
  11. REVLIMID [Suspect]
     Dosage: TWELFTH CYCLE
     Route: 048
     Dates: start: 20131023
  12. REVLIMID [Suspect]
     Dosage: THIRTEENTH CYCLE
     Route: 048
     Dates: start: 20131122
  13. REVLIMID [Suspect]
     Dosage: FOURTEENTH CYCLE
     Route: 048
     Dates: start: 20131218
  14. REVLIMID [Suspect]
     Dosage: FIFTEENTH CYCLE
     Route: 048
     Dates: start: 20140115, end: 20140116
  15. ZELITREX [Concomitant]
  16. SPECIAFOLDINE [Concomitant]
  17. ASPEGIC (FRANCE) [Concomitant]
     Route: 065
  18. BACTRIM [Concomitant]
     Route: 065

REACTIONS (1)
  - Cerebral infarction [Recovering/Resolving]
